FAERS Safety Report 5990437-1 (Version None)
Quarter: 2008Q4

REPORT INFORMATION
  Report Type: 
  Country: None (occurrence: None)
  Receive Date: 20081209
  Receipt Date: 20081124
  Transmission Date: 20090506
  Serious: Yes (Hospitalization)
  Sender: FDA-Public Use
  Company Number: 1000001476

PATIENT
  Age: 73 Year
  Sex: Female
  Weight: 80 kg

DRUGS (3)
  1. ESCITALOPRAM OXALATE [Suspect]
     Indication: DEPRESSION
     Dosage: 10 MG (20 MG, 1 IN 1 D), ORAL
     Route: 048
     Dates: start: 20080804, end: 20080805
  2. EQUANIL [Concomitant]
  3. PRITOR [Concomitant]

REACTIONS (7)
  - ABDOMINAL PAIN [None]
  - EXTRAPYRAMIDAL DISORDER [None]
  - HYPONATRAEMIA [None]
  - MACROCYTOSIS [None]
  - PALLOR [None]
  - PARKINSON'S DISEASE [None]
  - WHITE BLOOD CELL COUNT INCREASED [None]
